FAERS Safety Report 4896803-X (Version None)
Quarter: 2006Q1

REPORT INFORMATION
  Report Type: 
  Country: None (occurrence: None)
  Receive Date: 20060126
  Receipt Date: 20060117
  Transmission Date: 20060701
  Serious: Yes (Hospitalization)
  Sender: FDA-Public Use
  Company Number: 13099

PATIENT
  Age: 21 Year
  Sex: Male
  Weight: 72 kg

DRUGS (4)
  1. METHOTREXATE [Suspect]
     Indication: ACUTE LYMPHOCYTIC LEUKAEMIA
     Dosage: 12.5 MG PER_CYCLE, IT
     Route: 038
     Dates: start: 20051025, end: 20051129
  2. CO-TRIMAZOLE [Concomitant]
  3. DOMEPRIDONE [Concomitant]
  4. CYCLOPHOSPHAMIDE [Concomitant]

REACTIONS (3)
  - DYSPHASIA [None]
  - FACIAL PALSY [None]
  - HEMIPARESIS [None]
